FAERS Safety Report 23719102 (Version 1)
Quarter: 2024Q2

REPORT INFORMATION
  Report Type: Spontaneous
  Country: PL (occurrence: PL)
  Receive Date: 20240408
  Receipt Date: 20240408
  Transmission Date: 20240716
  Serious: Yes (Other)
  Sender: FDA-Public Use
  Company Number: None

PATIENT
  Age: 67 Year
  Sex: Male
  Weight: 98 kg

DRUGS (4)
  1. OXALIPLATIN [Suspect]
     Active Substance: OXALIPLATIN
     Indication: Colon cancer
     Dosage: ROA-20045000?INTRAVENOUS (NOT OTHERWISE SPECIFIED) ( INT )
     Dates: start: 20201006, end: 20201006
  2. LEVOLEUCOVORIN [Suspect]
     Active Substance: LEVOLEUCOVORIN
     Indication: Colon cancer
     Dosage: ROA-20045000?ROA: INTRAVENOUS (NOT OTHERWISE SPECIFIED) ( INT )
     Dates: start: 20201006, end: 20201008
  3. FLUOROURACIL [Suspect]
     Active Substance: FLUOROURACIL
     Indication: Colon cancer
     Dosage: ROA-20045000?ROA: INTRAVENOUS (NOT OTHERWISE SPECIFIED) ( INT )
     Dates: start: 20201006, end: 20201007
  4. FLUOROURACIL [Suspect]
     Active Substance: FLUOROURACIL
     Dosage: ROA-20045000?ROA: INTRAVENOUS (NOT OTHERWISE SPECIFIED) ( INT )
     Dates: start: 20201006, end: 20201008

REACTIONS (2)
  - Renal failure [Recovering/Resolving]
  - Asthenia [Recovering/Resolving]

NARRATIVE: CASE EVENT DATE: 20201103
